FAERS Safety Report 16135437 (Version 6)
Quarter: 2019Q3

REPORT INFORMATION
  Report Type: Report from Study
  Country: US (occurrence: US)
  Receive Date: 20190329
  Receipt Date: 20190827
  Transmission Date: 20191004
  Serious: Yes (Hospitalization)
  Sender: FDA-Public Use
  Company Number: US-ACTELION-A-US2019-188188

PATIENT
  Age: 61 Year
  Sex: Female
  Weight: 114.74 kg

DRUGS (19)
  1. ZOFRAN [Concomitant]
     Active Substance: ONDANSETRON HYDROCHLORIDE
  2. SILDENAFIL. [Concomitant]
     Active Substance: SILDENAFIL
  3. WARFARIN [Concomitant]
     Active Substance: WARFARIN
  4. COUMADIN [Concomitant]
     Active Substance: WARFARIN SODIUM
  5. VOLTAREN [Concomitant]
     Active Substance: DICLOFENAC SODIUM
  6. K-TAB [Concomitant]
     Active Substance: POTASSIUM CHLORIDE
  7. LASIX [Concomitant]
     Active Substance: FUROSEMIDE
  8. MELATONIN [Concomitant]
     Active Substance: MELATONIN
  9. METOLAZONE. [Concomitant]
     Active Substance: METOLAZONE
  10. DICLOFENAC [Concomitant]
     Active Substance: DICLOFENAC
  11. UPTRAVI [Suspect]
     Active Substance: SELEXIPAG
     Indication: PULMONARY ARTERIAL HYPERTENSION
     Dosage: 1000 MCG, BID
     Route: 048
  12. OPSUMIT [Suspect]
     Active Substance: MACITENTAN
     Indication: PULMONARY ARTERIAL HYPERTENSION
     Dosage: 10 MG, QD
     Route: 048
     Dates: start: 201510
  13. OXYGEN. [Concomitant]
     Active Substance: OXYGEN
  14. SPIRIVA [Concomitant]
     Active Substance: TIOTROPIUM BROMIDE MONOHYDRATE
  15. ALBUTEROL HFA [Concomitant]
     Active Substance: ALBUTEROL SULFATE
  16. ONDANSETRON [Concomitant]
     Active Substance: ONDANSETRON
  17. CITALOPRAM [Concomitant]
     Active Substance: CITALOPRAM HYDROBROMIDE
  18. ADVAIR UNSPEC [Concomitant]
  19. VENTOLIN HFA [Concomitant]
     Active Substance: ALBUTEROL SULFATE

REACTIONS (11)
  - Haemoptysis [Unknown]
  - Product dose omission [Unknown]
  - Adverse event [Unknown]
  - Cough [Recovering/Resolving]
  - Chest pain [Recovering/Resolving]
  - Pneumonia [Unknown]
  - Acute respiratory failure [Unknown]
  - Respiratory tract irritation [Unknown]
  - Chronic obstructive pulmonary disease [Unknown]
  - Dyspnoea [Unknown]
  - Chest discomfort [Unknown]

NARRATIVE: CASE EVENT DATE: 20190314
